FAERS Safety Report 5174600-8 (Version None)
Quarter: 2006Q4

REPORT INFORMATION
  Report Type: 
  Country: None (occurrence: None)
  Receive Date: 20061206
  Receipt Date: 20061117
  Transmission Date: 20070319
  Serious: No
  Sender: FDA-Public Use
  Company Number: 13583422

PATIENT
  Age: 65 Year
  Sex: Female

DRUGS (17)
  1. NALTREXONE HCL [Suspect]
     Indication: CROHN'S DISEASE
     Dosage: 1 MILLIGRAM ORAL
     Route: 048
     Dates: start: 20061019, end: 20061021
  2. CLINITAR (COAL TAR) [Concomitant]
  3. CLOBETASOL PROPIONATE [Concomitant]
  4. FENTANYL [Concomitant]
  5. FUOXETINE (FLUOXETINE HCL) [Concomitant]
  6. FUROSEMIDE [Concomitant]
  7. IPRATROPIUM BROMIDE [Concomitant]
  8. MEBEVERINE (MEBEVERINE HCL) [Concomitant]
  9. MESALAMINE [Concomitant]
  10. METFORMIN (METFORMIN HCL) [Concomitant]
  11. ONDANSETRON (ONDANSETRON HCL) [Concomitant]
  12. ACETAMINOPHEN [Concomitant]
  13. RAMIPRIL [Concomitant]
  14. SALAMOL (SALBUTAMOL) [Concomitant]
  15. SENNA (SENNA) [Concomitant]
  16. SYMBICORT [Concomitant]
  17. VENTOLIN [Concomitant]

REACTIONS (3)
  - DYSKINESIA [None]
  - HYPOAESTHESIA [None]
  - SENSATION OF HEAVINESS [None]
